FAERS Safety Report 10395604 (Version 1)
Quarter: 2014Q1

REPORT INFORMATION
  Report Type: Spontaneous
  Country: US (occurrence: None)
  Receive Date: 20130305
  Receipt Date: 20130305
  Transmission Date: 20141002
  Serious: Yes (Hospitalization)
  Sender: FDA-Public Use
  Company Number: 163-21880-12092499

PATIENT
  Age: 62 Year
  Sex: Female

DRUGS (6)
  1. REVLIMID (LENALIDOMIDE)(10 MILLIGRAM, CAPSULES) [Suspect]
     Indication: PLASMA CELL MYELOMA
     Route: 048
     Dates: start: 201011
  2. AMLODIPINE(AMLODIPINE)(UNKNOWN) [Concomitant]
  3. METFORMIN(METFORMIN)(UNKNOWN) [Concomitant]
  4. LIPITOR(ATORVASTATIN) (UNKNOWN) [Concomitant]
  5. VITAMIN D(ERGOCALCIFEROL)(UNKNOWN) [Concomitant]
  6. DEXAMETHASONE(DEXAMETHASONE)(UNKNOWN) [Concomitant]

REACTIONS (1)
  - Back pain [None]
